FAERS Safety Report 4650173-0 (Version None)
Quarter: 2005Q2

REPORT INFORMATION
  Report Type: 
  Country: None (occurrence: None)
  Receive Date: 20050428
  Receipt Date: 20050415
  Transmission Date: 20051028
  Serious: Yes (Other)
  Sender: FDA-Public Use
  Company Number: 2005059239

PATIENT
  Age: 82 Year
  Sex: Male

DRUGS (4)
  1. LINEZOLID SOLUTION, STERILE (LINEZOLID) [Suspect]
     Indication: PERITONITIS
     Dosage: INTRAVENOUS
     Route: 042
  2. LINEZOLID SOLUTION, STERILE (LINEZOLID) [Suspect]
     Indication: WOUND DEHISCENCE
     Dosage: INTRAVENOUS
     Route: 042
  3. DOPAMINE (DOPAMINE) [Concomitant]
  4. OMEPRAZOLE [Concomitant]

REACTIONS (2)
  - METABOLIC ACIDOSIS [None]
  - THROMBOCYTOPENIA [None]
